FAERS Safety Report 10967610 (Version 1)
Quarter: 2015Q1

REPORT INFORMATION
  Report Type: Other
  Country: GB (occurrence: GB)
  Receive Date: 20150330
  Receipt Date: 20150330
  Transmission Date: 20150721
  Serious: Yes (Other)
  Sender: FDA-Public Use
  Company Number: GB-MYLANLABS-2015M1008642

PATIENT

DRUGS (3)
  1. CO-DANTHRAMER [Concomitant]
     Dosage: 2 DF, QD
     Dates: start: 20140627
  2. DOXYCYCLINE. [Suspect]
     Active Substance: DOXYCYCLINE
     Dosage: 1 DF, QD (TWO NOW THEN ONE DAILY)
     Dates: start: 20150127
  3. MEBEVERINE HYDROCHLORIDE [Concomitant]
     Active Substance: MEBEVERINE HYDROCHLORIDE
     Dosage: 2 DF, BID
     Dates: start: 20140627

REACTIONS (1)
  - Depression [Recovered/Resolved]

NARRATIVE: CASE EVENT DATE: 20150129
